FAERS Safety Report 9595163 (Version 1)
Quarter: 2013Q4

REPORT INFORMATION
  Report Type: Spontaneous
  Country: US (occurrence: US)
  Receive Date: 20131004
  Receipt Date: 20131004
  Transmission Date: 20140711
  Serious: Yes (Hospitalization)
  Sender: FDA-Public Use
  Company Number: US-BAYER-2013-119710

PATIENT
  Age: 39 Year
  Sex: Female

DRUGS (3)
  1. YAZ [Suspect]
  2. COPAXONE [Concomitant]
     Indication: MULTIPLE SCLEROSIS
     Dosage: 1 CC/HS
     Route: 058
     Dates: start: 20090129
  3. LEXAPRO [Concomitant]
     Dosage: 10 MG, UNK
     Route: 048
     Dates: start: 20090129

REACTIONS (1)
  - Deep vein thrombosis [None]
